FAERS Safety Report 22179329 (Version 1)
Quarter: 2023Q2

REPORT INFORMATION
  Report Type: Spontaneous
  Country: DE (occurrence: DE)
  Receive Date: 20230406
  Receipt Date: 20230406
  Transmission Date: 20230721
  Serious: No
  Sender: FDA-Public Use
  Company Number: DE-ALKEM LABORATORIES LIMITED-DE-ALKEM-2023-01705

PATIENT
  Age: 75 Year
  Sex: Female

DRUGS (2)
  1. IBUPROFEN [Interacting]
     Active Substance: IBUPROFEN
     Indication: Pain
     Dosage: 600 MILLIGRAM, QD (FILM-COATED TABLET)
     Route: 065
     Dates: end: 20230104
  2. RAMIPRIL [Interacting]
     Active Substance: RAMIPRIL
     Indication: Hypertension
     Dosage: 1 DOSAGE FORM, QD
     Route: 065

REACTIONS (3)
  - Hypertension [Recovering/Resolving]
  - Palpitations [Recovering/Resolving]
  - Drug interaction [Unknown]
